FAERS Safety Report 9651474 (Version 1)
Quarter: 2013Q4

REPORT INFORMATION
  Report Type: Spontaneous
  Country: US (occurrence: SE)
  Receive Date: 20131029
  Receipt Date: 20131029
  Transmission Date: 20140711
  Serious: Yes (Other)
  Sender: FDA-Public Use
  Company Number: SE-FRI-1000050559

PATIENT
  Age: 84 Year
  Sex: Male

DRUGS (5)
  1. ROFLUMILAST [Suspect]
     Indication: CHRONIC OBSTRUCTIVE PULMONARY DISEASE
     Dosage: 500 MCG
     Route: 048
     Dates: start: 20130326, end: 20130821
  2. SYMBICORT FORTE [Concomitant]
  3. SPIRIVA [Concomitant]
  4. VENTOLINE DISKUS [Concomitant]
  5. ACETYLCYSTEIN MEDA [Concomitant]

REACTIONS (1)
  - Dysgeusia [Not Recovered/Not Resolved]
